FAERS Safety Report 20904272 (Version 1)
Quarter: 2022Q2

REPORT INFORMATION
  Report Type: Spontaneous
  Country: CA (occurrence: CA)
  Receive Date: 20220602
  Receipt Date: 20220602
  Transmission Date: 20220720
  Serious: Yes (Other)
  Sender: FDA-Public Use
  Company Number: CA-BAUSCH-BL-2022-012757

PATIENT
  Age: 86 Year
  Sex: Female

DRUGS (11)
  1. LOTEPREDNOL [Suspect]
     Active Substance: LOTEPREDNOL
     Indication: Corneal oedema
     Route: 061
  2. PREDNISOLONE [Suspect]
     Active Substance: PREDNISOLONE
     Indication: Prophylaxis against transplant rejection
     Route: 061
  3. PREDNISOLONE [Suspect]
     Active Substance: PREDNISOLONE
     Route: 061
  4. PREDNISOLONE [Suspect]
     Active Substance: PREDNISOLONE
     Route: 061
  5. AZATHIOPRINE [Suspect]
     Active Substance: AZATHIOPRINE
     Indication: Sjogren^s syndrome
     Route: 065
  6. BEVACIZUMAB [Concomitant]
     Active Substance: BEVACIZUMAB
     Indication: Neovascular age-related macular degeneration
     Route: 047
  7. AMPHOTERICIN B [Concomitant]
     Active Substance: AMPHOTERICIN B
     Indication: Keratitis fungal
     Dosage: EVERY 1-2 HOURS IN THE RIGHT EYE.
     Route: 061
  8. AMPHOTERICIN B [Concomitant]
     Active Substance: AMPHOTERICIN B
     Dosage: POSTOPERATIVELY: DAILY
     Route: 061
  9. VORICONAZOLE [Concomitant]
     Active Substance: VORICONAZOLE
     Indication: Keratitis fungal
     Route: 061
  10. VORICONAZOLE [Concomitant]
     Active Substance: VORICONAZOLE
     Dosage: POSTOPERATIVELY: DAILY HOURLY FOR 1 WEEK AND THEN 4 TIMES DAILY
     Route: 061
  11. TACROLIMUS [Concomitant]
     Active Substance: TACROLIMUS
     Indication: Prophylaxis against transplant rejection
     Dosage: 4 TIMES DAILY
     Route: 061

REACTIONS (2)
  - Keratitis fungal [Recovered/Resolved]
  - Infection [Recovered/Resolved]
